FAERS Safety Report 7964661 (Version 3)
Quarter: 2013Q1

REPORT INFORMATION
  Report Type: Spontaneous
  Country: CA (occurrence: None)
  Receive Date: 20110511
  Receipt Date: 20121220
  Transmission Date: 20140127
  Serious: Yes (Hospitalization)
  Sender: FDA-Public Use
  Company Number: 2011AP000868

PATIENT
  Age: 54 Year
  Sex: Female

DRUGS (10)
  1. ALLOPURINOL [Suspect]
     Indication: GOUT
     Dosage: 300 MG TAB, PO
     Route: 048
     Dates: start: 20101020, end: 20101106
  2. NORVASC (AMLODIPINE BESILATE) [Concomitant]
  3. METFORMIN (METFORMIN) [Concomitant]
  4. PAXIL (PAROXETINE HYDROCHLORIDE) [Concomitant]
  5. ARTHOTEC (ARTHOTEC) [Concomitant]
  6. TYLENOL NO.2 (SOLPADEINE  /00154101/) [Concomitant]
  7. CRESTOR (ROSUVASTATIN CALCIUM) [Concomitant]
  8. ELAVIL  /00002202/ (AMITRIPTYLINE HYDROCHLORIDE) [Concomitant]
  9. PARIET (RABEPRAZOLE SODIUM) [Concomitant]
  10. EZETROL (EZETIMIBE) [Concomitant]

REACTIONS (3)
  - Toxic epidermal necrolysis [None]
  - Fungal infection [None]
  - Scar [None]
